FAERS Safety Report 12466565 (Version 1)
Quarter: 2016Q2

REPORT INFORMATION
  Report Type: Spontaneous
  Country: US (occurrence: US)
  Receive Date: 20160615
  Receipt Date: 20160615
  Transmission Date: 20160815
  Serious: No
  Sender: FDA-Public Use
  Company Number: US-ASTRAZENECA-2016SE46089

PATIENT
  Sex: Female
  Weight: 75.7 kg

DRUGS (17)
  1. ANASTROZOLE. [Suspect]
     Active Substance: ANASTROZOLE
     Indication: BREAST CANCER
     Route: 048
  2. AROMASIN [Suspect]
     Active Substance: EXEMESTANE
     Indication: BREAST CANCER
     Route: 048
     Dates: start: 20151130
  3. GEMFIBROZIL. [Concomitant]
     Active Substance: GEMFIBROZIL
  4. COUMADIN [Concomitant]
     Active Substance: WARFARIN SODIUM
  5. VENTOLIN HFA [Concomitant]
     Active Substance: ALBUTEROL SULFATE
  6. BACTRIM [Concomitant]
     Active Substance: SULFAMETHOXAZOLE\TRIMETHOPRIM
  7. RANITIIDENE HCL [Concomitant]
  8. MUPIROCIN. [Concomitant]
     Active Substance: MUPIROCIN
  9. FISH OIL [Concomitant]
     Active Substance: FISH OIL
  10. ZOFRAN [Concomitant]
     Active Substance: ONDANSETRON HYDROCHLORIDE
  11. ATENOLOL. [Suspect]
     Active Substance: ATENOLOL
     Route: 048
  12. LISINOPRIL. [Suspect]
     Active Substance: LISINOPRIL
     Route: 048
  13. GLIPIZIDE. [Concomitant]
     Active Substance: GLIPIZIDE
  14. TRAMADOL HCL [Concomitant]
     Active Substance: TRAMADOL HYDROCHLORIDE
  15. MEDROL DOSE PACK [Suspect]
     Active Substance: METHYLPREDNISOLONE
     Route: 065
  16. CETIRIZINE HCL [Concomitant]
     Active Substance: CETIRIZINE HYDROCHLORIDE
  17. COLACE [Concomitant]
     Active Substance: DOCUSATE SODIUM

REACTIONS (4)
  - Arthralgia [Unknown]
  - Fatigue [Unknown]
  - Skin lesion [Unknown]
  - Thyroid mass [Unknown]
